FAERS Safety Report 7659632-X (Version None)
Quarter: 2011Q3

REPORT INFORMATION
  Report Type: 
  Country: None (occurrence: None)
  Receive Date: 20110805
  Receipt Date: 20110727
  Transmission Date: 20111222
  Serious: Yes (Other)
  Sender: FDA-Public Use
  Company Number: NL-MERCK-1107NLD00002

PATIENT
  Age: 57 Year
  Sex: Male

DRUGS (6)
  1. LISINOPRIL [Concomitant]
     Indication: BLOOD PRESSURE MANAGEMENT
     Route: 048
  2. COSOPT [Suspect]
     Indication: GLAUCOMA
     Route: 047
     Dates: start: 20101119, end: 20110316
  3. METFORMIN HYDROCHLORIDE AND VILDAGLIPTIN [Concomitant]
     Route: 048
  4. ATORVASTATIN CALCIUM [Concomitant]
     Indication: HYPERCHOLESTEROLAEMIA
     Route: 048
  5. TRAVOPROST [Concomitant]
     Indication: INTRAOCULAR PRESSURE TEST
     Route: 047
     Dates: start: 20110313
  6. SALICYLIC ACID [Concomitant]
     Indication: PROPHYLAXIS
     Route: 048

REACTIONS (8)
  - GASTRIC DISORDER [None]
  - HYPERSENSITIVITY [None]
  - CELLULITIS [None]
  - GASTROINTESTINAL DISORDER [None]
  - LIBIDO DECREASED [None]
  - SLEEP DISORDER [None]
  - FATIGUE [None]
  - NEPHROLITHIASIS [None]
